FAERS Safety Report 4695005-X (Version None)
Quarter: 2005Q2

REPORT INFORMATION
  Report Type: 
  Country: None (occurrence: None)
  Receive Date: 20050617
  Receipt Date: 20050608
  Transmission Date: 20051028
  Serious: Yes (Other)
  Sender: FDA-Public Use
  Company Number: 2005-06-0418

PATIENT
  Age: 27 Year
  Sex: Female

DRUGS (1)
  1. INTERFERON INJECTABLE [Suspect]
     Indication: HEPATITIS B
     Dates: start: 20040906

REACTIONS (6)
  - CYTOMEGALOVIRUS ENTEROCOLITIS [None]
  - GRANULOMA [None]
  - LARGE INTESTINAL ULCER [None]
  - MELAENA [None]
  - MUCOUS MEMBRANE DISORDER [None]
  - RECTAL ULCER [None]
